FAERS Safety Report 25070413 (Version 1)
Quarter: 2025Q1

REPORT INFORMATION
  Report Type: Spontaneous
  Country: CA (occurrence: CA)
  Receive Date: 20250312
  Receipt Date: 20250312
  Transmission Date: 20250409
  Serious: Yes (Other)
  Sender: FRESENIUS KABI
  Company Number: CA-FreseniusKabi-FK202503563

PATIENT
  Age: 59 Year
  Sex: Female

DRUGS (14)
  1. ADALIMUMAB [Suspect]
     Active Substance: ADALIMUMAB
     Indication: Rheumatoid arthritis
     Route: 058
  2. ADALIMUMAB [Suspect]
     Active Substance: ADALIMUMAB
     Dosage: FORM OF ADMIN.: SOLUTION FOR INJECTION
     Route: 058
  3. BILASTINE [Concomitant]
     Active Substance: BILASTINE
     Indication: Hypersensitivity
  4. COVID-19 VACCINE [Concomitant]
     Indication: Product used for unknown indication
  5. FOLIC ACID [Concomitant]
     Active Substance: FOLIC ACID
     Indication: Product used for unknown indication
  6. HYDROXYCHLOROQUINE SULFATE [Concomitant]
     Active Substance: HYDROXYCHLOROQUINE SULFATE
     Indication: Product used for unknown indication
  7. HYDROXYCHLOROQUINE SULFATE [Concomitant]
     Active Substance: HYDROXYCHLOROQUINE SULFATE
  8. MOMETASONE FUROATE\OLOPATADINE HYDROCHLORIDE [Concomitant]
     Active Substance: MOMETASONE FUROATE\OLOPATADINE HYDROCHLORIDE
     Indication: Sinus disorder
  9. MOMETASONE FUROATE\OLOPATADINE HYDROCHLORIDE [Concomitant]
     Active Substance: MOMETASONE FUROATE\OLOPATADINE HYDROCHLORIDE
     Indication: Hypersensitivity
  10. MONTELUKAST [Concomitant]
     Active Substance: MONTELUKAST
     Indication: Hypersensitivity
  11. NAPROXEN [Concomitant]
     Active Substance: NAPROXEN
     Indication: Product used for unknown indication
  12. PANTOPRAZOLE SODIUM [Concomitant]
     Active Substance: PANTOPRAZOLE SODIUM
     Indication: Product used for unknown indication
  13. TYLENOL 8 HR ARTHRITIS PAIN [Concomitant]
     Active Substance: ACETAMINOPHEN
     Indication: Product used for unknown indication
  14. VITAMIN D [Concomitant]
     Active Substance: VITAMIN D NOS
     Indication: Product used for unknown indication

REACTIONS (11)
  - Accidental exposure to product [Recovered/Resolved]
  - Exposure to SARS-CoV-2 [Recovered/Resolved]
  - Exposure via skin contact [Recovered/Resolved]
  - Gastroenteritis listeria [Recovered/Resolved]
  - Illness [Recovered/Resolved]
  - Immunodeficiency [Recovered/Resolved]
  - Intentional dose omission [Recovered/Resolved]
  - Pruritus [Recovered/Resolved]
  - Rash [Recovered/Resolved]
  - Systemic lupus erythematosus [Recovered/Resolved]
  - Urinary tract infection [Recovered/Resolved]
